FAERS Safety Report 6410262-7 (Version None)
Quarter: 2009Q4

REPORT INFORMATION
  Report Type: 
  Country: None (occurrence: None)
  Receive Date: 20091022
  Receipt Date: 20091020
  Transmission Date: 20100525
  Serious: Yes (Other)
  Sender: FDA-Public Use
  Company Number: A0806921A

PATIENT
  Age: 11 Year
  Sex: Female
  Weight: 36.4 kg

DRUGS (4)
  1. ADVAIR DISKUS 100/50 [Suspect]
     Indication: ASTHMA
     Dosage: 1PUFF TWICE PER DAY
     Route: 055
     Dates: start: 20080828, end: 20091001
  2. SINGULAIR [Concomitant]
     Dosage: 5MG PER DAY
  3. MAXAIR [Concomitant]
  4. ZYRTEC [Concomitant]

REACTIONS (1)
  - CATARACT [None]
